FAERS Safety Report 24290554 (Version 1)
Quarter: 2024Q3

REPORT INFORMATION
  Report Type: Spontaneous
  Country: IT (occurrence: IT)
  Receive Date: 20240906
  Receipt Date: 20240906
  Transmission Date: 20241017
  Serious: Yes (Hospitalization, Other)
  Sender: RANBAXY
  Company Number: IT-MINISAL02-992507

PATIENT
  Age: 50 Year
  Sex: Female

DRUGS (5)
  1. AMLODIPINE [Suspect]
     Active Substance: AMLODIPINE BESYLATE
     Indication: Drug abuse
     Dosage: 5MG /16 CPR
     Route: 048
     Dates: start: 20240614, end: 20240614
  2. BISOPROLOL [Suspect]
     Active Substance: BISOPROLOL\BISOPROLOL FUMARATE
     Indication: Drug abuse
     Dosage: 2 DOSAGE FORM
     Route: 048
     Dates: start: 20240614, end: 20240614
  3. ASPIRIN [Suspect]
     Active Substance: ASPIRIN
     Indication: Drug abuse
     Dosage: 29 CPR
     Route: 048
     Dates: start: 20240614, end: 20240614
  4. QUETIAPINE [Suspect]
     Active Substance: QUETIAPINE
     Indication: Drug abuse
     Dosage: 1 BLISTER
     Route: 048
     Dates: start: 20240614, end: 20240614
  5. HALCION [Suspect]
     Active Substance: TRIAZOLAM
     Indication: Drug abuse
     Dosage: 20 CPR DA 0,25MG
     Route: 048
     Dates: start: 20240614, end: 20240614

REACTIONS (3)
  - Hypotension [Unknown]
  - Drug abuse [Unknown]
  - Sopor [Unknown]

NARRATIVE: CASE EVENT DATE: 20240614
